FAERS Safety Report 9293317 (Version 1)
Quarter: 2013Q2

REPORT INFORMATION
  Report Type: Spontaneous
  Country: FR (occurrence: FR)
  Receive Date: 20130516
  Receipt Date: 20130516
  Transmission Date: 20140414
  Serious: Yes (Other)
  Sender: FDA-Public Use
  Company Number: PHHY2013FR048239

PATIENT
  Age: 78 Year
  Sex: Female
  Weight: 35 kg

DRUGS (13)
  1. TAREG [Suspect]
     Indication: HYPERTENSION
     Dosage: QD
     Route: 048
     Dates: start: 2008, end: 201110
  2. ELISOR [Suspect]
     Indication: DYSLIPIDAEMIA
     Dosage: 20 MG, QD
     Route: 048
     Dates: start: 2000
  3. CRESTOR [Suspect]
     Indication: DYSLIPIDAEMIA
     Dosage: QD
     Route: 048
     Dates: start: 201104, end: 201105
  4. OLMETEC [Suspect]
     Dosage: 40 MG, QD
     Route: 048
     Dates: start: 201110, end: 201112
  5. PRITOR [Suspect]
     Dosage: QD
     Route: 048
     Dates: start: 201112, end: 20130113
  6. CORDARONE [Concomitant]
     Indication: ATRIAL FIBRILLATION
     Dosage: 200 MG, UNK
     Route: 048
     Dates: start: 2000, end: 2000
  7. B12-VITAMIIN [Concomitant]
     Dosage: 1 DF, MONTHLY
     Route: 030
     Dates: start: 1990
  8. SOTALEX [Concomitant]
     Dosage: 1.5 DF, DAILY (80 MG)
     Route: 048
     Dates: start: 2000
  9. FLODIL [Concomitant]
     Dosage: 5 MG, QD
     Route: 048
     Dates: start: 1996
  10. KARDEGIC [Concomitant]
     Dosage: 75 MG, QD
     Route: 048
     Dates: start: 2000
  11. LEXOMIL [Concomitant]
     Indication: INSOMNIA
     Dosage: 0.25 DF, DAILY
     Route: 048
     Dates: start: 2001
  12. LEVOTHYROX [Concomitant]
     Indication: THYROID DISORDER
     Dosage: 100 UG, QD
     Route: 048
     Dates: start: 2000
  13. SMECTA [Concomitant]

REACTIONS (2)
  - Colitis microscopic [Recovering/Resolving]
  - Diarrhoea [Recovering/Resolving]
